FAERS Safety Report 11758120 (Version 1)
Quarter: 2015Q4

REPORT INFORMATION
  Report Type: Spontaneous
  Country: US (occurrence: US)
  Receive Date: 20151120
  Receipt Date: 20151120
  Transmission Date: 20160304
  Serious: No
  Sender: FDA-Public Use
  Company Number: US-PERRIGO-14US011006

PATIENT
  Age: 88 Year
  Sex: Male
  Weight: 77.98 kg

DRUGS (3)
  1. OTHER DRUGS USED IN BENIGN PROSTATIC HYPERTRO [Concomitant]
     Indication: PROSTATOMEGALY
     Dosage: UNK
     Route: 065
     Dates: start: 2009
  2. BAYER ASPIRIN [Concomitant]
     Active Substance: ASPIRIN
     Indication: ROUTINE HEALTH MAINTENANCE
     Dosage: 81 MG, UNK
     Route: 048
     Dates: start: 2006
  3. FAMOTIDINE. [Suspect]
     Active Substance: FAMOTIDINE
     Indication: PROPHYLAXIS
     Dosage: 1/2 TABLET, EACH NIGHT
     Route: 048
     Dates: start: 20141103

REACTIONS (3)
  - No adverse event [Unknown]
  - Wrong technique in product usage process [Unknown]
  - Incorrect dose administered [Unknown]

NARRATIVE: CASE EVENT DATE: 20141103
